FAERS Safety Report 5874067-8 (Version None)
Quarter: 2008Q3

REPORT INFORMATION
  Report Type: 
  Country: None (occurrence: None)
  Receive Date: 20080829
  Receipt Date: 20080814
  Transmission Date: 20090109
  Serious: Yes (Other)
  Sender: FDA-Public Use
  Company Number: CA-1167008

PATIENT
  Sex: Female

DRUGS (1)
  1. FLUORESCITE [Suspect]
     Indication: ANGIOGRAM RETINA
     Dosage: 5 ML
     Route: 040
     Dates: start: 20080616, end: 20080616

REACTIONS (7)
  - DYSPHAGIA [None]
  - DYSPHONIA [None]
  - PARAESTHESIA ORAL [None]
  - PO2 DECREASED [None]
  - PRURITUS [None]
  - SNEEZING [None]
  - THROAT TIGHTNESS [None]
